FAERS Safety Report 5124003-7 (Version None)
Quarter: 2006Q4

REPORT INFORMATION
  Report Type: 
  Country: None (occurrence: None)
  Receive Date: 20061010
  Receipt Date: 20061002
  Transmission Date: 20070319
  Serious: Yes (Hospitalization)
  Sender: FDA-Public Use
  Company Number: DE-BAYER-200611303BVD

PATIENT
  Age: 67 Year
  Sex: Male
  Weight: 80 kg

DRUGS (9)
  1. SORAFENIB [Suspect]
     Indication: RENAL CELL CARCINOMA STAGE UNSPECIFIED
     Dosage: TOTAL DAILY DOSE: 800 MG  UNIT DOSE: 200 MG
     Route: 048
     Dates: start: 20060525, end: 20060704
  2. SORAFENIB [Suspect]
     Dosage: TOTAL DAILY DOSE: 400 MG  UNIT DOSE: 200 MG
     Route: 048
     Dates: start: 20060705, end: 20060720
  3. SORAFENIB [Suspect]
     Dosage: TOTAL DAILY DOSE: 400 MG  UNIT DOSE: 200 MG
     Route: 048
     Dates: start: 20060902, end: 20061001
  4. SORAFENIB [Suspect]
     Dosage: TOTAL DAILY DOSE: 200 MG  UNIT DOSE: 200 MG
     Route: 048
     Dates: start: 20060721, end: 20060901
  5. ALLOPURINOL [Concomitant]
     Indication: HYPERURICAEMIA
     Route: 048
     Dates: start: 20060301
  6. MARCUMAR [Concomitant]
     Indication: ATRIAL FLUTTER
     Route: 048
     Dates: start: 20050415
  7. TRAMADOLOR [Concomitant]
     Route: 048
     Dates: start: 20050914
  8. DHC [Concomitant]
     Route: 065
     Dates: start: 20060914
  9. MCP GUTTAE [Concomitant]
     Indication: NAUSEA
     Route: 048
     Dates: start: 20060626

REACTIONS (5)
  - ALOPECIA [None]
  - ANOREXIA [None]
  - CONSTIPATION [None]
  - NAUSEA [None]
  - PARESIS [None]
